FAERS Safety Report 10193270 (Version 1)
Quarter: 2014Q2

REPORT INFORMATION
  Report Type: Spontaneous
  Country: US (occurrence: US)
  Receive Date: 20140524
  Receipt Date: 20140524
  Transmission Date: 20141212
  Serious: No
  Sender: FDA-Public Use
  Company Number: US-SA-2014SA012761

PATIENT
  Sex: 0

DRUGS (1)
  1. LANTUS [Suspect]
     Route: 058

REACTIONS (8)
  - Dyspnoea [Unknown]
  - Chest pain [Unknown]
  - Dry mouth [Unknown]
  - Abdominal pain upper [Unknown]
  - Photophobia [Unknown]
  - Blood ketone body increased [Unknown]
  - Vomiting [Unknown]
  - Drug dose omission [Unknown]
